FAERS Safety Report 8854783 (Version 1)
Quarter: 2012Q4

REPORT INFORMATION
  Report Type: Report from Study
  Country: FR (occurrence: FR)
  Receive Date: 20121023
  Receipt Date: 20121023
  Transmission Date: 20130627
  Serious: Yes (Death, Other)
  Sender: FDA-Public Use
  Company Number: FR-SANOFI-AVENTIS-2012SA077035

PATIENT

DRUGS (3)
  1. DOCETAXEL [Suspect]
     Indication: LEIOMYOSARCOMA
     Dosage: 60 minute infusion on day 8, in every 21 day cycle
     Route: 065
  2. GEMCITABINE [Suspect]
     Indication: LEIOMYOSARCOMA
     Dosage: administered as fixed dose as a 90 minute infusion on days 1 and 8, in 21 day cycle
     Route: 065
  3. LENOGRASTIM [Concomitant]
     Dosage: from day 9 to day 15

REACTIONS (2)
  - Thrombocytopenia [Unknown]
  - Haemorrhage [Fatal]
